FAERS Safety Report 9317538 (Version 1)
Quarter: 2013Q2

REPORT INFORMATION
  Report Type: Spontaneous
  Country: US (occurrence: US)
  Receive Date: 20130530
  Receipt Date: 20130530
  Transmission Date: 20140414
  Serious: No
  Sender: FDA-Public Use
  Company Number: US-GLAXOSMITHKLINE-A0972672A

PATIENT
  Age: 71 Year
  Sex: Male

DRUGS (7)
  1. VENTOLIN [Suspect]
     Indication: TOTAL LUNG CAPACITY DECREASED
     Dosage: 2PUFF FOUR TIMES PER DAY
     Route: 055
     Dates: start: 2007, end: 201203
  2. ISOSORBIDE [Concomitant]
  3. SIMVASTATIN [Concomitant]
  4. ASPIRIN [Concomitant]
  5. VITAMIN D [Concomitant]
  6. CENTRUM SILVER [Concomitant]
  7. OXYGEN [Concomitant]

REACTIONS (3)
  - Epistaxis [Not Recovered/Not Resolved]
  - Epistaxis [Not Recovered/Not Resolved]
  - Epistaxis [Not Recovered/Not Resolved]
